FAERS Safety Report 7313130-1 (Version None)
Quarter: 2011Q1

REPORT INFORMATION
  Report Type: 
  Country: None (occurrence: None)
  Receive Date: 20110215
  Receipt Date: 20110215
  Transmission Date: 20110831
  Serious: No
  Sender: FDA-Public Use
  Company Number: None

PATIENT
  Age: 68 Year
  Sex: Male

DRUGS (1)
  1. REGADENOSON [Suspect]
     Indication: ANGIOGRAM
     Dates: start: 20110207, end: 20110207

REACTIONS (1)
  - HYPOTENSION [None]
